FAERS Safety Report 10759702 (Version 1)
Quarter: 2015Q1

REPORT INFORMATION
  Report Type: Spontaneous
  Country: VN (occurrence: VN)
  Receive Date: 20150203
  Receipt Date: 20150203
  Transmission Date: 20150721
  Serious: Yes (Death, Disabling, Other)
  Sender: FDA-Public Use
  Company Number: VN-009507513-1502VNM000491

PATIENT
  Age: 62 Year
  Sex: Female

DRUGS (1)
  1. FOSAMAX [Suspect]
     Active Substance: ALENDRONATE SODIUM
     Dosage: 1 DF, QW
     Route: 048
     Dates: start: 20140810

REACTIONS (4)
  - Atrioventricular block [Fatal]
  - Movement disorder [Unknown]
  - Intervertebral disc protrusion [Unknown]
  - Cardiac operation [Unknown]

NARRATIVE: CASE EVENT DATE: 20150112
